FAERS Safety Report 8776506 (Version 6)
Quarter: 2021Q2

REPORT INFORMATION
  Report Type: Spontaneous
  Country: JP (occurrence: JP)
  Receive Date: 20120910
  Receipt Date: 20210428
  Transmission Date: 20210717
  Serious: Yes (Death, Other)
  Sender: FDA-Public Use
  Company Number: PHHY2012JP077451

PATIENT
  Age: 67 Year
  Sex: Male
  Weight: 55.7 kg

DRUGS (2)
  1. IMATINIB. [Suspect]
     Active Substance: IMATINIB MESYLATE
     Indication: CHRONIC MYELOID LEUKAEMIA
     Dosage: 400 MG, QD
     Route: 048
     Dates: start: 201012, end: 201104
  2. IMATINIB. [Suspect]
     Active Substance: IMATINIB MESYLATE
     Dosage: 200 MG, QD
     Route: 048
     Dates: start: 201012, end: 201104

REACTIONS (8)
  - Cytopenia [Recovering/Resolving]
  - Anaemia [Unknown]
  - Abdominal pain [Recovered/Resolved]
  - Malignant neoplasm progression [Fatal]
  - Chronic myeloid leukaemia [Unknown]
  - Red blood cell count decreased [Unknown]
  - Platelet count decreased [Unknown]
  - White blood cell count decreased [Unknown]

NARRATIVE: CASE EVENT DATE: 201012
